FAERS Safety Report 14748098 (Version 2)
Quarter: 2018Q2

REPORT INFORMATION
  Report Type: Report from Study
  Country: US (occurrence: US)
  Receive Date: 20180411
  Receipt Date: 20180416
  Transmission Date: 20180711
  Serious: Yes (Hospitalization, Other)
  Sender: FDA-Public Use
  Company Number: US-GILEAD-2018-0330471

PATIENT
  Age: 23 Year
  Sex: Female

DRUGS (4)
  1. AMBRISENTAN [Suspect]
     Active Substance: AMBRISENTAN
     Dosage: 5 MG, UNK
     Route: 065
  2. AMBRISENTAN [Suspect]
     Active Substance: AMBRISENTAN
     Indication: PULMONARY ARTERIAL HYPERTENSION
     Dosage: 10 MG, QD
     Route: 065
     Dates: start: 20100924
  3. VELETRI [Concomitant]
     Active Substance: EPOPROSTENOL
  4. ADCIRCA [Suspect]
     Active Substance: TADALAFIL
     Indication: PRODUCT USED FOR UNKNOWN INDICATION
     Dosage: 40 MG, QD
     Route: 065
     Dates: start: 20180224

REACTIONS (4)
  - Pulmonary arterial hypertension [Recovering/Resolving]
  - Fluid retention [Not Recovered/Not Resolved]
  - Cardiac failure [Recovering/Resolving]
  - Central venous catheterisation [Unknown]

NARRATIVE: CASE EVENT DATE: 20180319
